FAERS Safety Report 23839880 (Version 1)
Quarter: 2024Q2

REPORT INFORMATION
  Report Type: Spontaneous
  Country: GB (occurrence: GB)
  Receive Date: 20240510
  Receipt Date: 20240510
  Transmission Date: 20240716
  Serious: Yes (Other)
  Sender: FDA-Public Use
  Company Number: None

PATIENT
  Age: 56 Year
  Sex: Female
  Weight: 70 kg

DRUGS (7)
  1. MONTELUKAST [Suspect]
     Active Substance: MONTELUKAST SODIUM
     Indication: Ill-defined disorder
     Dosage: UNK
     Route: 065
     Dates: start: 20240425
  2. AMOXICILLIN [Concomitant]
     Active Substance: AMOXICILLIN
     Indication: Ill-defined disorder
     Dosage: 1 DOSAGE FORM, TID (TAKE ONE 3 TIMES PER DAY  )
     Route: 065
     Dates: start: 20240227, end: 20240303
  3. BUDESONIDE\FORMOTEROL FUMARATE [Concomitant]
     Active Substance: BUDESONIDE\FORMOTEROL FUMARATE
     Indication: Ill-defined disorder
     Dosage: UNK, BID (TWO PUFFS TWICE A DAY IN ASTHMA ONLY. PLEASE R..)
     Route: 065
     Dates: start: 20240102
  4. LEVOTHYROXINE [Concomitant]
     Active Substance: LEVOTHYROXINE\LEVOTHYROXINE SODIUM
     Indication: Ill-defined disorder
     Dosage: 1 DOSAGE FORM, QD (TAKE ONE DAILY)
     Route: 065
     Dates: start: 20240102
  5. MONTELUKAST [Concomitant]
     Active Substance: MONTELUKAST SODIUM
     Indication: Ill-defined disorder
     Dosage: 1 DOSAGE FORM, QD (TAKE ONE AT NIGHT)
     Route: 065
     Dates: start: 20240102, end: 20240425
  6. PREDNISOLONE [Concomitant]
     Active Substance: PREDNISOLONE
     Indication: Ill-defined disorder
     Dosage: UNK (6 DAILY FOR 5D)
     Route: 065
     Dates: start: 20240402, end: 20240403
  7. ALBUTEROL SULFATE [Concomitant]
     Active Substance: ALBUTEROL SULFATE
     Indication: Ill-defined disorder
     Dosage: UNK (TAKE ONE OR TWO PUFFS WHEN REQUIRED FOR BREATHL..)
     Route: 065
     Dates: start: 20240102

REACTIONS (1)
  - Mood altered [Recovered/Resolved]

NARRATIVE: CASE EVENT DATE: 20240501
